FAERS Safety Report 24037091 (Version 1)
Quarter: 2024Q3

REPORT INFORMATION
  Report Type: Spontaneous
  Country: US (occurrence: US)
  Receive Date: 20240701
  Receipt Date: 20240701
  Transmission Date: 20241017
  Serious: No
  Sender: NOVARTIS
  Company Number: US-SANDOZ-SDZ2024US060895

PATIENT
  Age: 72 Year
  Sex: Male

DRUGS (8)
  1. ZOMETA [Suspect]
     Active Substance: ZOLEDRONIC ACID
     Indication: Osteoporosis
     Dosage: UNK
     Route: 065
  2. PLUVICTO [Suspect]
     Active Substance: LUTETIUM LU-177 VIPIVOTIDE TETRAXETAN
     Indication: Product used for unknown indication
     Dosage: UNK X3
     Route: 065
     Dates: start: 202312, end: 202403
  3. CABAZITAXEL [Suspect]
     Active Substance: CABAZITAXEL
     Indication: Product used for unknown indication
     Dosage: UNK; X6 WITH PD
     Route: 065
  4. TAXOTERE [Suspect]
     Active Substance: DOCETAXEL
     Indication: Product used for unknown indication
     Dosage: UNK; X6
     Route: 065
     Dates: start: 2016
  5. TAXOTERE [Suspect]
     Active Substance: DOCETAXEL
     Dosage: UNK; X3
     Route: 065
     Dates: start: 2017
  6. TAXOTERE [Suspect]
     Active Substance: DOCETAXEL
     Dosage: UNK; X6
     Route: 065
     Dates: start: 20211108
  7. XTANDI [Suspect]
     Active Substance: ENZALUTAMIDE
     Indication: Product used for unknown indication
     Dosage: UNK; WITH PR THEN PD
     Route: 065
  8. XTANDI [Suspect]
     Active Substance: ENZALUTAMIDE
     Dosage: UNK; WITH PR THEN PD
     Route: 065
     Dates: start: 202306

REACTIONS (1)
  - Tachycardia [Unknown]
